FAERS Safety Report 13101279 (Version 1)
Quarter: 2017Q1

REPORT INFORMATION
  Report Type: Spontaneous
  Country: AR (occurrence: AR)
  Receive Date: 20170110
  Receipt Date: 20170110
  Transmission Date: 20170428
  Serious: Yes (Other)
  Sender: FDA-Public Use
  Company Number: AR-PFIZER INC-2017003594

PATIENT
  Age: 58 Year
  Sex: Male

DRUGS (1)
  1. SUTENT [Suspect]
     Active Substance: SUNITINIB MALATE
     Indication: LUNG NEOPLASM MALIGNANT
     Dosage: UNK, CYCLIC (SCHEME 4/2; 28 DAYS ON, 15 DAYS OFF)

REACTIONS (2)
  - Blister [Not Recovered/Not Resolved]
  - Abasia [Not Recovered/Not Resolved]
